FAERS Safety Report 14666909 (Version 1)
Quarter: 2018Q1

REPORT INFORMATION
  Report Type: Spontaneous
  Country: JP (occurrence: JP)
  Receive Date: 20180322
  Receipt Date: 20180322
  Transmission Date: 20180509
  Serious: Yes (Other)
  Sender: FDA-Public Use
  Company Number: JP-BRISTOL-MYERS SQUIBB COMPANY-BMS-2018-025286

PATIENT
  Age: 45 Year
  Sex: Female

DRUGS (1)
  1. OPDIVO [Suspect]
     Active Substance: NIVOLUMAB
     Indication: GASTRIC CANCER RECURRENT
     Dosage: 10 MG/M2, Q2WK
     Route: 041

REACTIONS (2)
  - Meningoencephalitis herpetic [Not Recovered/Not Resolved]
  - Herpes zoster [Recovered/Resolved]
